FAERS Safety Report 14812768 (Version 2)
Quarter: 2018Q4

REPORT INFORMATION
  Report Type: Spontaneous
  Country: FR (occurrence: FR)
  Receive Date: 20180426
  Receipt Date: 20181024
  Transmission Date: 20190204
  Serious: Yes (Hospitalization)
  Sender: FDA-Public Use
  Company Number: FR-MERCK KGAA-2046516

PATIENT
  Age: 64 Year
  Sex: Female

DRUGS (1)
  1. EUTHYROX [Suspect]
     Active Substance: LEVOTHYROXINE SODIUM
     Indication: PRODUCT USED FOR UNKNOWN INDICATION
     Dates: start: 201703

REACTIONS (12)
  - Blood thyroid stimulating hormone increased [Recovered/Resolved]
  - Arrhythmia [None]
  - Myalgia [None]
  - Headache [None]
  - Mood altered [None]
  - Thyroxine increased [None]
  - Glomerular filtration rate decreased [None]
  - Blood creatinine increased [None]
  - Alopecia [None]
  - Mobility decreased [None]
  - Weight increased [None]
  - Loss of personal independence in daily activities [None]

NARRATIVE: CASE EVENT DATE: 20170517
